FAERS Safety Report 23594910 (Version 2)
Quarter: 2024Q1

REPORT INFORMATION
  Report Type: Report from Study
  Country: KR (occurrence: KR)
  Receive Date: 20240305
  Receipt Date: 20240319
  Transmission Date: 20240410
  Serious: Yes (Death, Hospitalization, Congenital Anomaly)
  Sender: FDA-Public Use
  Company Number: KR-BEIGENE-BGN-2024-003083

PATIENT

DRUGS (4)
  1. BRUKINSA [Suspect]
     Active Substance: ZANUBRUTINIB
     Indication: Waldenstrom^s macroglobulinaemia
     Dosage: 160 MILLIGRAM, BID
     Route: 048
     Dates: start: 20211214, end: 20240226
  2. URSODIOL [Concomitant]
     Active Substance: URSODIOL
     Indication: Liver disorder
     Dosage: 1T
     Route: 048
     Dates: start: 20240213
  3. Godex [Concomitant]
     Indication: Liver disorder
     Dosage: 1C
     Route: 048
     Dates: start: 20240213
  4. MEGACE F [Concomitant]
     Indication: Prophylaxis
     Dosage: 5 MILLILITER
     Route: 048
     Dates: start: 20240213, end: 20240311

REACTIONS (15)
  - Liver disorder [Fatal]
  - Constipation [Fatal]
  - Hyperuricaemia [Fatal]
  - Hepatitis [Fatal]
  - Productive cough [Fatal]
  - Electrolyte imbalance [Fatal]
  - Pruritus [Fatal]
  - Pain [Fatal]
  - Pyrexia [Fatal]
  - Aspartate aminotransferase abnormal [Not Recovered/Not Resolved]
  - Alanine aminotransferase abnormal [Not Recovered/Not Resolved]
  - General physical health deterioration [Not Recovered/Not Resolved]
  - Hepatorenal syndrome [Not Recovered/Not Resolved]
  - Hepatic encephalopathy [Not Recovered/Not Resolved]
  - Hepatic cirrhosis [Not Recovered/Not Resolved]

NARRATIVE: CASE EVENT DATE: 20240226
